FAERS Safety Report 10182704 (Version 1)
Quarter: 2014Q2

REPORT INFORMATION
  Report Type: Spontaneous
  Country: US (occurrence: None)
  Receive Date: 20140519
  Receipt Date: 20140519
  Transmission Date: 20141212
  Serious: Yes (Hospitalization)
  Sender: FDA-Public Use
  Company Number: None

PATIENT
  Age: 55 Year
  Sex: Male
  Weight: 93.9 kg

DRUGS (1)
  1. ISENTRESS [Suspect]
     Indication: HIV TEST POSITIVE
     Route: 048
     Dates: start: 20140107, end: 20140518

REACTIONS (4)
  - Type 2 diabetes mellitus [None]
  - Cough [None]
  - Fatigue [None]
  - Fatigue [None]
